FAERS Safety Report 6253337-8 (Version None)
Quarter: 2009Q3

REPORT INFORMATION
  Report Type: 
  Country: None (occurrence: None)
  Receive Date: 20090701
  Receipt Date: 20090622
  Transmission Date: 20100115
  Serious: Yes (Other)
  Sender: FDA-Public Use
  Company Number: PHHY2009MX25037

PATIENT
  Age: 71 Year
  Sex: Female

DRUGS (4)
  1. EXFORGE [Suspect]
     Indication: HYPERTENSION
     Dosage: 1 TABLET (160/5 MG) PER DAY
     Route: 048
     Dates: start: 20071001, end: 20090601
  2. INSULIN [Concomitant]
     Indication: DIABETES MELLITUS
  3. JANUVIA [Concomitant]
     Indication: DIABETES MELLITUS
  4. TIOTAFIL [Concomitant]
     Indication: DIABETIC NEUROPATHY

REACTIONS (6)
  - BLISTER [None]
  - ERYTHEMA [None]
  - FEELING HOT [None]
  - INFLAMMATION [None]
  - PHOTOSENSITIVITY REACTION [None]
  - PRURITUS [None]
